FAERS Safety Report 6308456-4 (Version None)
Quarter: 2009Q3

REPORT INFORMATION
  Report Type: 
  Country: None (occurrence: None)
  Receive Date: 20090813
  Receipt Date: 20090804
  Transmission Date: 20100115
  Serious: Yes (Other)
  Sender: FDA-Public Use
  Company Number: PHBS2009IT00858

PATIENT
  Age: 55 Year
  Sex: Female

DRUGS (6)
  1. IMATINIB MESYLATE [Suspect]
     Indication: CHRONIC MYELOID LEUKAEMIA
     Dosage: 400 MG/DAY
  2. IMATINIB MESYLATE [Suspect]
     Dosage: 600 MG/DAY
  3. NILOTINIB [Suspect]
     Indication: CHRONIC MYELOID LEUKAEMIA
     Dosage: 400 MG TWICE A DAY
  4. DASATINIB [Suspect]
     Indication: CHRONIC MYELOID LEUKAEMIA
     Dosage: 70 MG TWICE A DAY
  5. DASATINIB [Suspect]
     Dosage: 50 MG/DAY
  6. HYDROXYUREA [Concomitant]

REACTIONS (13)
  - CHROMOSOME ANALYSIS ABNORMAL [None]
  - CHRONIC MYELOID LEUKAEMIA [None]
  - DIARRHOEA [None]
  - ELECTROCARDIOGRAM ABNORMAL [None]
  - FLUID RETENTION [None]
  - GENE MUTATION IDENTIFICATION TEST POSITIVE [None]
  - GLUCOSE TOLERANCE IMPAIRED [None]
  - HAEMATOTOXICITY [None]
  - NAUSEA [None]
  - OCULAR TOXICITY [None]
  - PYREXIA [None]
  - RASH [None]
  - SUBENDOCARDIAL ISCHAEMIA [None]
